FAERS Safety Report 8876772 (Version 1)
Quarter: 2012Q4

REPORT INFORMATION
  Report Type: Report from Study
  Country: BR (occurrence: BR)
  Receive Date: 20121030
  Receipt Date: 20121030
  Transmission Date: 20130627
  Serious: Yes (Other)
  Sender: FDA-Public Use
  Company Number: BR-ROCHE-1147449

PATIENT
  Age: 44 Year
  Sex: Female

DRUGS (2)
  1. RITUXIMAB [Suspect]
     Indication: RHEUMATOID ARTHRITIS
     Dosage: Last infuion: 17/Oct/2010
     Route: 065
     Dates: start: 20100301
  2. RITUXIMAB [Suspect]
     Indication: SJOGREN^S SYNDROME

REACTIONS (2)
  - Infection [Unknown]
  - Thrombosis [Recovering/Resolving]
